FAERS Safety Report 13081911 (Version 1)
Quarter: 2017Q1

REPORT INFORMATION
  Report Type: Spontaneous
  Country: US (occurrence: US)
  Receive Date: 20170103
  Receipt Date: 20170103
  Transmission Date: 20170428
  Serious: Yes (Death)
  Sender: FDA-Public Use
  Company Number: US-PFIZER INC-2016605541

PATIENT
  Age: 61 Year

DRUGS (1)
  1. CAMPTOSAR [Suspect]
     Active Substance: IRINOTECAN HYDROCHLORIDE
     Dosage: 100 MG, UNK (VIAL)

REACTIONS (1)
  - Death [Fatal]

NARRATIVE: CASE EVENT DATE: 20161019
